FAERS Safety Report 19075083 (Version 1)
Quarter: 2021Q1

REPORT INFORMATION
  Report Type: Other
  Country: HR (occurrence: HR)
  Receive Date: 20210331
  Receipt Date: 20210331
  Transmission Date: 20210420
  Serious: Yes (Other)
  Sender: FDA-Public Use
  Company Number: HR-CELLTRION INC.-2021HR004094

PATIENT

DRUGS (11)
  1. STUGERON [Concomitant]
     Active Substance: CINNARIZINE
     Dosage: 1 TBL PP
     Route: 048
  2. VALSACOR [Concomitant]
     Active Substance: VALSARTAN
     Dosage: 160 MG
     Route: 048
  3. MOXAVIV [Concomitant]
     Active Substance: MOXONIDINE
     Dosage: 0.4 MG
     Route: 048
  4. SEROXAT [Concomitant]
     Active Substance: PAROXETINE HYDROCHLORIDE
     Dosage: 20 MG
     Route: 048
  5. CONTROLOC [Concomitant]
     Active Substance: PANTOPRAZOLE SODIUM
     Dosage: 40 MG
     Route: 048
  6. NALGESIN FORTE [Concomitant]
     Active Substance: NAPROXEN SODIUM
     Dosage: 550 MG 2?3X
     Route: 048
  7. REMSIMA [Suspect]
     Active Substance: INFLIXIMAB
     Indication: SPONDYLOARTHROPATHY
     Dosage: 500 MG (ADR ADEQUATELY LABELLED: YES)
     Route: 042
     Dates: start: 20191204, end: 20200111
  8. XANAX [Concomitant]
     Active Substance: ALPRAZOLAM
     Dosage: 0.5 MG, PRN
     Route: 048
  9. FURSEMID [Concomitant]
     Active Substance: FUROSEMIDE
     Dosage: PP
     Route: 048
  10. CALIXTA [Concomitant]
     Active Substance: MIRTAZAPINE
     Dosage: 1/2 TBL
     Route: 048
  11. NEBYOL [Concomitant]
     Active Substance: NEBIVOLOL HYDROCHLORIDE
     Dosage: 2.5 MG
     Route: 048

REACTIONS (2)
  - Underdose [Unknown]
  - Pulmonary tuberculosis [Recovering/Resolving]

NARRATIVE: CASE EVENT DATE: 20200301
